FAERS Safety Report 7274346-6 (Version None)
Quarter: 2011Q1

REPORT INFORMATION
  Report Type: 
  Country: None (occurrence: None)
  Receive Date: 20110131
  Receipt Date: 20110131
  Transmission Date: 20110831
  Serious: Yes (Other)
  Sender: FDA-Public Use
  Company Number: None

PATIENT
  Age: 28 Year
  Sex: Female

DRUGS (1)
  1. DOXYCYCLINE [Suspect]
     Dosage: 100 MG BID PO
     Route: 048
     Dates: start: 20110124, end: 20110124

REACTIONS (1)
  - URTICARIA [None]
